FAERS Safety Report 16384762 (Version 1)
Quarter: 2019Q2

REPORT INFORMATION
  Report Type: Spontaneous
  Country: HU (occurrence: HU)
  Receive Date: 20190603
  Receipt Date: 20190603
  Transmission Date: 20190711
  Serious: Yes (Life-Threatening, Hospitalization, Other)
  Sender: FDA-Public Use
  Company Number: HU-BAUSCH-BL-2019-016028

PATIENT
  Age: 24 Year
  Sex: Male

DRUGS (8)
  1. TACROLIMUS. [Suspect]
     Active Substance: TACROLIMUS
     Dosage: TARGET PRE DOSE LEVEL: 6-12 MONTHS -12 NG/ML
     Route: 065
     Dates: end: 2013
  2. MYCOPHENOLATE MOFETIL. [Suspect]
     Active Substance: MYCOPHENOLATE MOFETIL
     Indication: IMMUNOSUPPRESSANT DRUG THERAPY
     Dosage: 2 X 1000 MG
     Route: 065
     Dates: start: 2012, end: 20130101
  3. PREDNISOLONE. [Suspect]
     Active Substance: PREDNISOLONE
     Dosage: 1-3 MONTHS 0.3 MG/KG, 3-6 MONTHS 0.2 MG/KG FOLLOWED BY 10 MG/D
     Route: 065
     Dates: start: 2012
  4. PREDNISOLONE. [Suspect]
     Active Substance: PREDNISOLONE
     Indication: IMMUNOSUPPRESSANT DRUG THERAPY
     Dosage: 1-3 MONTHS 0.3 MG/KG, 3-6 MONTHS 0.2 MG/KG FOLLOWED BY 10 MG/D
     Route: 065
     Dates: end: 2013
  5. ANTITHYMOCYTE GLOBULIN [Suspect]
     Active Substance: THYMOCYTE IMMUNE GLOBULIN NOS
     Indication: IMMUNOSUPPRESSANT DRUG THERAPY
     Route: 065
     Dates: start: 2012
  6. PREDNISOLONE. [Suspect]
     Active Substance: PREDNISOLONE
     Dosage: 1-3 MONTHS 0.3 MG/KG, 3-6 MONTHS 0.2 MG/KG FOLLOWED BY 10 MG/D
     Route: 065
     Dates: end: 2013
  7. TACROLIMUS. [Suspect]
     Active Substance: TACROLIMUS
     Indication: IMMUNOSUPPRESSANT DRUG THERAPY
     Dosage: TARGET PRE DOSE LEVEL: 3-6 MONTHS - 15 NG/ML
     Route: 065
  8. TACROLIMUS. [Suspect]
     Active Substance: TACROLIMUS
     Dosage: TARGET PRE DOSE LEVEL: 0-3 MONTHS 15-20 NG/ML
     Route: 065
     Dates: start: 2012

REACTIONS (1)
  - Testis cancer [Recovered/Resolved]

NARRATIVE: CASE EVENT DATE: 2013
